FAERS Safety Report 23597813 (Version 1)
Quarter: 2024Q1

REPORT INFORMATION
  Report Type: Spontaneous
  Country: US (occurrence: US)
  Receive Date: 20240305
  Receipt Date: 20240305
  Transmission Date: 20240410
  Serious: Yes (Other)
  Sender: FDA-Public Use
  Company Number: US-GE HEALTHCARE-2024CSU001886

PATIENT
  Age: 77 Year
  Sex: Male
  Weight: 84.807 kg

DRUGS (1)
  1. OMNIPAQUE [Suspect]
     Active Substance: IOHEXOL
     Indication: Urogram
     Dosage: 150 ML, TOTAL
     Route: 042
     Dates: start: 20240228, end: 20240228

REACTIONS (1)
  - Contrast media allergy [Recovering/Resolving]

NARRATIVE: CASE EVENT DATE: 20240228
